FAERS Safety Report 25058817 (Version 1)
Quarter: 2025Q1

REPORT INFORMATION
  Report Type: Spontaneous
  Country: US (occurrence: US)
  Receive Date: 20250310
  Receipt Date: 20250310
  Transmission Date: 20250408
  Serious: No
  Sender: GILEAD
  Company Number: US-GILEAD-2025-0706661

PATIENT
  Sex: Male

DRUGS (5)
  1. SELADELPAR [Suspect]
     Active Substance: SELADELPAR
     Indication: Primary biliary cholangitis
     Route: 065
  2. SELADELPAR [Suspect]
     Active Substance: SELADELPAR
     Route: 065
  3. URSODIOL [Concomitant]
     Active Substance: URSODIOL
     Indication: Primary biliary cholangitis
  4. OBETICHOLIC ACID [Concomitant]
     Active Substance: OBETICHOLIC ACID
     Indication: Primary biliary cholangitis
  5. OBETICHOLIC ACID [Concomitant]
     Active Substance: OBETICHOLIC ACID

REACTIONS (2)
  - Blood alkaline phosphatase decreased [Unknown]
  - Abdominal pain [Recovered/Resolved]
